FAERS Safety Report 8936746 (Version 2)
Quarter: 2013Q1

REPORT INFORMATION
  Report Type: Spontaneous
  Country: IT (occurrence: IT)
  Receive Date: 20121130
  Receipt Date: 20130103
  Transmission Date: 20140127
  Serious: Yes (Disabling, Other)
  Sender: FDA-Public Use
  Company Number: IT-009507513-1211ITA012098

PATIENT
  Age: 75 Year
  Sex: Female

DRUGS (3)
  1. FOSAVANCE [Suspect]
     Indication: OSTEOPOROTIC FRACTURE
     Dosage: 1 DF, QW(70MG+70MICROGRAM)
     Route: 048
     Dates: start: 20051001, end: 20071001
  2. ACLASTA [Interacting]
     Indication: OSTEOPOROTIC FRACTURE
     Dosage: 5 MG, ANNUAL
     Route: 042
     Dates: start: 20070101
  3. DELTACORTENE [Concomitant]
     Indication: OSTEOPOROSIS
     Dosage: 2.5 MG, UNK
     Route: 048
     Dates: start: 20120301, end: 20120315

REACTIONS (2)
  - Drug interaction [Unknown]
  - Osteonecrosis of jaw [Not Recovered/Not Resolved]
